FAERS Safety Report 15822528 (Version 1)
Quarter: 2019Q1

REPORT INFORMATION
  Report Type: Spontaneous
  Country: US (occurrence: US)
  Receive Date: 20190114
  Receipt Date: 20190114
  Transmission Date: 20190417
  Serious: No
  Sender: FDA-Public Use
  Company Number: None

PATIENT
  Age: 43 Year
  Sex: Female
  Weight: 139.05 kg

DRUGS (3)
  1. FLORAGEN PROBIOTIC [Concomitant]
  2. AMOXICILLIN POT-CLAVUL 875/125 TABS [Suspect]
     Active Substance: AMOXICILLIN\CLAVULANATE POTASSIUM
     Indication: SINUSITIS
     Dosage: ?          QUANTITY:14 TABLET(S);?
     Route: 048
     Dates: start: 20190109, end: 20190113
  3. 2000 IU VITAMIN D WOMANS ONE A DAY VITAMINS [Concomitant]

REACTIONS (4)
  - Pain [None]
  - Pain in extremity [None]
  - Muscle spasms [None]
  - Burning sensation [None]

NARRATIVE: CASE EVENT DATE: 20190109
